FAERS Safety Report 9277007 (Version 1)
Quarter: 2013Q2

REPORT INFORMATION
  Report Type: Spontaneous
  Country: GB (occurrence: None)
  Receive Date: 20130501
  Receipt Date: 20130501
  Transmission Date: 20140414
  Serious: Yes (Other)
  Sender: FDA-Public Use
  Company Number: 20130202

PATIENT
  Sex: 0

DRUGS (1)
  1. TRANEXAMIC ACID [Suspect]

REACTIONS (2)
  - Deep vein thrombosis [None]
  - False negative investigation result [None]
